FAERS Safety Report 9291428 (Version 1)
Quarter: 2013Q2

REPORT INFORMATION
  Report Type: Spontaneous
  Country: US (occurrence: US)
  Receive Date: 20130515
  Receipt Date: 20130515
  Transmission Date: 20140414
  Serious: No
  Sender: FDA-Public Use
  Company Number: US-009507513-1305USA008457

PATIENT
  Sex: Female

DRUGS (3)
  1. VICTRELIS [Suspect]
     Indication: HEPATITIS C
     Dosage: 800 MG, TID
     Route: 048
     Dates: start: 201305, end: 201305
  2. INTERFERON ALFA-2B [Suspect]
  3. RIBAVIRIN [Suspect]
     Route: 048

REACTIONS (1)
  - Arthralgia [Recovering/Resolving]
